FAERS Safety Report 25273553 (Version 1)
Quarter: 2025Q2

REPORT INFORMATION
  Report Type: Spontaneous
  Country: US (occurrence: US)
  Receive Date: 20250506
  Receipt Date: 20250506
  Transmission Date: 20250716
  Serious: Yes (Other)
  Sender: BAYER HEALTHCARE PHARMACEUTICALS INC.
  Company Number: US-BAYER-2025A060133

PATIENT
  Sex: Male

DRUGS (2)
  1. JIVI [Suspect]
     Active Substance: DAMOCTOCOG ALFA PEGOL
     Dosage: JIVI 3144 UNITS/ INFUSE 3048 IU, BIW PRN
  2. JIVI [Suspect]
     Active Substance: DAMOCTOCOG ALFA PEGOL

REACTIONS (1)
  - Haemarthrosis [Recovered/Resolved]
